FAERS Safety Report 8905472 (Version 1)
Quarter: 2012Q4

REPORT INFORMATION
  Report Type: 
  Country: PH (occurrence: PH)
  Receive Date: 20121113
  Receipt Date: 20121113
  Transmission Date: 20130627
  Serious: Yes (Death, Hospitalization, Other)
  Sender: FDA-Public Use
  Company Number: PH-BAXTER-2012BAX021556

PATIENT
  Age: 81 Year
  Sex: Female

DRUGS (1)
  1. DIANEAL PD2 WITH 2.5% DEXTROSE [Suspect]
     Indication: AUTOMATED PERITONEAL DIALYSIS
     Route: 033
     Dates: start: 20100917, end: 20121101

REACTIONS (3)
  - Cardiac arrest [Fatal]
  - Peritonitis bacterial [Unknown]
  - Hypotension [Unknown]
